FAERS Safety Report 10901229 (Version 1)
Quarter: 2015Q1

REPORT INFORMATION
  Report Type: Spontaneous
  Country: US (occurrence: None)
  Receive Date: 20150303
  Receipt Date: 20150303
  Transmission Date: 20150721
  Serious: Yes (Other)
  Sender: FDA-Public Use
  Company Number: ADR-2015-00403

PATIENT
  Age: 59 Year
  Sex: Female

DRUGS (8)
  1. BACLOFEN INTRATHECAL [Suspect]
     Active Substance: BACLOFEN
     Indication: PAIN
  2. SALINE [Suspect]
     Active Substance: SODIUM CHLORIDE
  3. DARVOCET [Suspect]
     Active Substance: ACETAMINOPHEN\PROPOXYPHENE HYDROCHLORIDE
  4. LIDODERM [Suspect]
     Active Substance: LIDOCAINE
  5. MORPHINE [Suspect]
     Active Substance: MORPHINE
  6. ALPRAZOLAM. [Suspect]
     Active Substance: ALPRAZOLAM
  7. BUPIVACAINE INTRATHECAL [Suspect]
     Active Substance: BUPIVACAINE
  8. MS IR [Suspect]
     Active Substance: MORPHINE SULFATE

REACTIONS (10)
  - Complex regional pain syndrome [None]
  - Lower limb fracture [None]
  - Device battery issue [None]
  - Withdrawal syndrome [None]
  - Implant site pain [None]
  - Constipation [None]
  - Suicidal ideation [None]
  - Electric shock [None]
  - Swelling [None]
  - Malaise [None]
